FAERS Safety Report 24855497 (Version 2)
Quarter: 2025Q1

REPORT INFORMATION
  Report Type: Spontaneous
  Country: TH (occurrence: TH)
  Receive Date: 20250117
  Receipt Date: 20250128
  Transmission Date: 20250409
  Serious: Yes (Hospitalization, Other)
  Sender: JUBILANT
  Company Number: TH-JUBILANT CADISTA PHARMACEUTICALS-2025TH000045

PATIENT
  Sex: Male

DRUGS (1)
  1. BUPROPION HYDROCHLORIDE [Suspect]
     Active Substance: BUPROPION HYDROCHLORIDE
     Indication: Major depression

REACTIONS (6)
  - Intentional overdose [Unknown]
  - Electrocardiogram QT prolonged [Unknown]
  - Loss of consciousness [Not Recovered/Not Resolved]
  - Status epilepticus [Not Recovered/Not Resolved]
  - Dyskinesia [Not Recovered/Not Resolved]
  - Seizure [Recovered/Resolved]
